FAERS Safety Report 16681095 (Version 1)
Quarter: 2019Q3

REPORT INFORMATION
  Report Type: Report from Study
  Country: ES (occurrence: ES)
  Receive Date: 20190808
  Receipt Date: 20190808
  Transmission Date: 20191004
  Serious: Yes (Hospitalization)
  Sender: FDA-Public Use
  Company Number: ES-ACCORD-150618

PATIENT
  Age: 89 Year
  Sex: Male

DRUGS (7)
  1. SPIRONOLACTONE. [Suspect]
     Active Substance: SPIRONOLACTONE
     Indication: HYPERTENSION
     Dosage: 1 TABLET /24 HOUR
     Route: 048
     Dates: start: 201708, end: 20180302
  2. SITAGLIPTIN/SITAGLIPTIN PHOSPHATE [Concomitant]
     Dosage: STRENGTH: 50 MG
     Route: 048
  3. FUROSEMIDE. [Suspect]
     Active Substance: FUROSEMIDE
     Indication: HYPERTENSION
     Dosage: 1-0-0
     Route: 048
     Dates: start: 201609, end: 20180302
  4. SINTROM [Concomitant]
     Active Substance: ACENOCOUMAROL
     Dosage: STRENGTH: 4 MG
     Route: 048
  5. BISOPROLOL [Concomitant]
     Active Substance: BISOPROLOL
     Dosage: STRENGTH: 2.5 MG
     Route: 048
  6. QUETIAPINE/QUETIAPINE FUMARATE [Concomitant]
     Dosage: STRENGTH: 25 MG
     Route: 048
  7. DISTRANEURINE [Concomitant]
     Active Substance: CLOMETHIAZOLE
     Route: 048

REACTIONS (3)
  - Hyperkalaemia [Recovered/Resolved]
  - Hyponatraemia [Recovered/Resolved]
  - Acute kidney injury [Recovering/Resolving]

NARRATIVE: CASE EVENT DATE: 2018
